FAERS Safety Report 7153359-9 (Version None)
Quarter: 2010Q4

REPORT INFORMATION
  Report Type: 
  Country: None (occurrence: None)
  Receive Date: 20101209
  Receipt Date: 20101209
  Transmission Date: 20110411
  Serious: Yes (Life-Threatening, Hospitalization, Other)
  Sender: FDA-Public Use
  Company Number: None

PATIENT
  Age: 41 Year
  Sex: Male
  Weight: 107.9561 kg

DRUGS (2)
  1. SAVELLA [Suspect]
     Indication: BACK DISORDER
     Dosage: 50 MG 2 PO
     Route: 048
     Dates: start: 20101105, end: 20101206
  2. SAVELLA [Suspect]
     Indication: PAIN
     Dosage: 50 MG 2 PO
     Route: 048
     Dates: start: 20101105, end: 20101206

REACTIONS (7)
  - CARDIOMEGALY [None]
  - DIZZINESS [None]
  - DYSSTASIA [None]
  - FALL [None]
  - FEELING ABNORMAL [None]
  - LOSS OF CONSCIOUSNESS [None]
  - TACHYARRHYTHMIA [None]
